FAERS Safety Report 26041678 (Version 1)
Quarter: 2025Q4

REPORT INFORMATION
  Report Type: Spontaneous
  Country: EU (occurrence: EU)
  Receive Date: 20251113
  Receipt Date: 20251113
  Transmission Date: 20260118
  Serious: Yes (Hospitalization)
  Sender: MERCK SHARP & DOHME LLC
  Company Number: None

PATIENT
  Age: 56 Year
  Sex: Female
  Weight: 67 kg

DRUGS (7)
  1. KEYTRUDA [Suspect]
     Active Substance: PEMBROLIZUMAB
     Indication: Metastasis
     Route: 042
     Dates: start: 20241009, end: 20250418
  2. INDAPAMIDE [Concomitant]
     Active Substance: INDAPAMIDE
  3. KLIPAL 300 mg/25 mg, tablet [Concomitant]
  4. KETOPROFEN [Concomitant]
     Active Substance: KETOPROFEN
  5. SIMVASTATIN [Concomitant]
     Active Substance: SIMVASTATIN
  6. ALIMTA [Suspect]
     Active Substance: PEMETREXED DISODIUM
     Indication: Bronchial carcinoma
     Route: 042
     Dates: start: 20241009, end: 20250418
  7. PERINDOPRIL [Concomitant]
     Active Substance: PERINDOPRIL

REACTIONS (1)
  - Renal tubular disorder [Recovered/Resolved with Sequelae]

NARRATIVE: CASE EVENT DATE: 20241009
